FAERS Safety Report 6088072-2 (Version None)
Quarter: 2009Q1

REPORT INFORMATION
  Report Type: 
  Country: None (occurrence: None)
  Receive Date: 20090218
  Receipt Date: 20090203
  Transmission Date: 20090719
  Serious: Yes (Other)
  Sender: FDA-Public Use
  Company Number: 2009S1000244

PATIENT
  Age: 66 Year
  Sex: Male
  Weight: 98 kg

DRUGS (5)
  1. BISOMERCK (BISOPROLOL) (5 MG) [Suspect]
     Indication: EXTRASYSTOLES
     Dosage: 2.5 MG; TWICE A DAY; ORAL
     Route: 048
     Dates: start: 20010101
  2. BISOMERCK (BISOPROLOL) (5 MG) [Suspect]
     Indication: HYPERTENSION
     Dosage: 2.5 MG; TWICE A DAY; ORAL
     Route: 048
     Dates: start: 20010101
  3. BISOMERCK (BISOPROLOL) (5 MG) [Suspect]
     Indication: EXTRASYSTOLES
     Dosage: 2.5 MG; TWICE A DAY; ORAL
     Route: 048
     Dates: start: 20020101
  4. BISOMERCK (BISOPROLOL) (5 MG) [Suspect]
     Indication: HYPERTENSION
     Dosage: 2.5 MG; TWICE A DAY; ORAL
     Route: 048
     Dates: start: 20020101
  5. CONCOR [Concomitant]

REACTIONS (3)
  - PRURITUS [None]
  - SWELLING [None]
  - URTICARIA [None]
